FAERS Safety Report 7977037-9 (Version None)
Quarter: 2011Q4

REPORT INFORMATION
  Report Type: 
  Country: None (occurrence: None)
  Receive Date: 20111213
  Receipt Date: 20111112
  Transmission Date: 20120403
  Serious: No
  Sender: FDA-Public Use
  Company Number: US-AMGEN-USASP2011038255

PATIENT
  Age: 67 Year
  Sex: Female
  Weight: 43.084 kg

DRUGS (11)
  1. CORTISONE ACETATE [Concomitant]
     Indication: INJECTION SITE RASH
     Dosage: UNK
  2. FISH OIL [Concomitant]
     Dosage: 1000 MG ONE TWICE DAILY
  3. ENBREL [Suspect]
     Indication: RHEUMATOID ARTHRITIS
     Dosage: 25 MG, 2 TIMES/WK
     Route: 058
     Dates: start: 20100101
  4. BENADRYL [Concomitant]
     Dosage: UNK
  5. MINOCYCLINE HCL [Concomitant]
     Dosage: 50 MG ONE EVERY OTHER DAY
  6. PLAQUENIL [Concomitant]
     Indication: RHEUMATOID ARTHRITIS
     Dosage: 200 MG ONE PILL DAILY
  7. PREDNISONE TAB [Concomitant]
     Dosage: 1 MG TWO DAILY
  8. NORVASC [Concomitant]
     Dosage: 5 MG ONCE DAILY IN EVENING
  9. CENTRUM SILVER                     /01292501/ [Concomitant]
     Dosage: ONE DAILY
  10. SPIRULINA                          /01514001/ [Concomitant]
     Dosage: ONE DAILY
  11. COZAAR [Concomitant]
     Dosage: 100 MG ONE DAILY IN MORNING

REACTIONS (13)
  - JOINT RANGE OF MOTION DECREASED [None]
  - HAEMORRHOIDS [None]
  - JOINT SWELLING [None]
  - SYNOVITIS [None]
  - MUSCULOSKELETAL STIFFNESS [None]
  - NEUROPATHY PERIPHERAL [None]
  - RASH [None]
  - DENTAL CARE [None]
  - HIATUS HERNIA [None]
  - GASTRITIS [None]
  - HYPERURICAEMIA [None]
  - DIPLOPIA [None]
  - INJECTION SITE RASH [None]
